FAERS Safety Report 20176381 (Version 1)
Quarter: 2021Q4

REPORT INFORMATION
  Report Type: Spontaneous
  Country: US (occurrence: US)
  Receive Date: 20211213
  Receipt Date: 20211213
  Transmission Date: 20220303
  Serious: No
  Sender: FDA-Public Use
  Company Number: US-CELGENE-USA-20211201429

PATIENT
  Age: 69 Year
  Sex: Female

DRUGS (2)
  1. REVLIMID [Suspect]
     Active Substance: LENALIDOMIDE
     Indication: Plasma cell myeloma
     Dosage: 25 MILLIGRAM
     Route: 048
     Dates: start: 202111
  2. Isatuximab (Sarclisa) [Concomitant]
     Indication: Product used for unknown indication
     Route: 065

REACTIONS (6)
  - Muscle spasms [Unknown]
  - Constipation [Unknown]
  - White blood cell count decreased [Unknown]
  - Fatigue [Unknown]
  - Back pain [Unknown]
  - Hypotension [Unknown]

NARRATIVE: CASE EVENT DATE: 20211203
